FAERS Safety Report 26069086 (Version 2)
Quarter: 2025Q4

REPORT INFORMATION
  Report Type: Report from Study
  Country: CN (occurrence: CN)
  Receive Date: 20251120
  Receipt Date: 20251217
  Transmission Date: 20260117
  Serious: Yes (Hospitalization)
  Sender: TAKEDA
  Company Number: CN-TAKEDA-2025TUS101795

PATIENT
  Sex: Female

DRUGS (1)
  1. IXAZOMIB [Suspect]
     Active Substance: IXAZOMIB
     Indication: Plasma cell myeloma
     Dosage: UNK

REACTIONS (8)
  - Feeding disorder [Unknown]
  - Poor quality sleep [Unknown]
  - Gait disturbance [Unknown]
  - Peripheral swelling [Unknown]
  - General physical health deterioration [Unknown]
  - Illness [Unknown]
  - Asthenia [Unknown]
  - Diarrhoea [Unknown]
